FAERS Safety Report 7363554-1 (Version None)
Quarter: 2011Q1

REPORT INFORMATION
  Report Type: 
  Country: None (occurrence: None)
  Receive Date: 20110321
  Receipt Date: 20110307
  Transmission Date: 20110831
  Serious: Yes (Other)
  Sender: FDA-Public Use
  Company Number: AU-VALEANT-2011VX000717

PATIENT
  Sex: Male

DRUGS (1)
  1. PERMETHRIN [Suspect]
     Route: 061
     Dates: start: 20110219, end: 20110219

REACTIONS (2)
  - ANAPHYLACTIC REACTION [None]
  - URTICARIA [None]
